FAERS Safety Report 8050153-1 (Version None)
Quarter: 2012Q1

REPORT INFORMATION
  Report Type: 
  Country: None (occurrence: None)
  Receive Date: 20120117
  Receipt Date: 20120113
  Transmission Date: 20120608
  Serious: Yes (Hospitalization, Disabling)
  Sender: FDA-Public Use
  Company Number: US-MERCK-1112USA01674

PATIENT
  Age: 65 Year
  Sex: Male

DRUGS (2)
  1. JANUMET [Suspect]
     Indication: TYPE 2 DIABETES MELLITUS
     Route: 048
     Dates: start: 20110201, end: 20111212
  2. PRILOSEC [Concomitant]
     Route: 065

REACTIONS (6)
  - BILIARY COLIC [None]
  - PRESYNCOPE [None]
  - PLEURITIC PAIN [None]
  - PLEURAL EFFUSION [None]
  - CARDIOSPASM [None]
  - BILE DUCT STONE [None]
